FAERS Safety Report 5254899-X (Version None)
Quarter: 2007Q1

REPORT INFORMATION
  Report Type: 
  Country: None (occurrence: None)
  Receive Date: 20070305
  Receipt Date: 20070221
  Transmission Date: 20070707
  Serious: Yes (Other)
  Sender: FDA-Public Use
  Company Number: PHBS2006JP15170

PATIENT
  Age: 67 Year
  Sex: Female

DRUGS (2)
  1. AREDIA [Suspect]
     Indication: MULTIPLE MYELOMA
     Dosage: UNK, UNK
     Route: 042
  2. INCADRONIC ACID [Suspect]
     Dosage: UNK, UNK
     Route: 065

REACTIONS (1)
  - OSTEONECROSIS [None]
